FAERS Safety Report 5527865-4 (Version None)
Quarter: 2007Q4

REPORT INFORMATION
  Report Type: 
  Country: None (occurrence: None)
  Receive Date: 20071123
  Receipt Date: 20071109
  Transmission Date: 20080405
  Serious: Yes (Death, Hospitalization)
  Sender: FDA-Public Use
  Company Number: DSA_30633_2007

PATIENT
  Age: 58 Year
  Sex: Male

DRUGS (10)
  1. ENALAPRIL MALEATE [Suspect]
     Indication: ESSENTIAL HYPERTENSION
     Dosage: (20 MG QD ORAL)
     Route: 048
     Dates: end: 20070718
  2. METFORMIN HCL [Suspect]
     Indication: DIABETES MELLITUS
     Dosage: (3 G QD)
  3. ELAVIL [Suspect]
     Indication: DIABETIC NEUROPATHY
     Dosage: (10 MG BID ORAL), (DF)
     Route: 048
     Dates: start: 20070629
  4. ELAVIL [Suspect]
     Indication: POLYNEUROPATHY
     Dosage: (10 MG BID ORAL), (DF)
     Route: 048
     Dates: start: 20070629
  5. LYRICA [Suspect]
     Indication: DIABETIC NEUROPATHY
     Dosage: (200 MG TID ORAL), (DF)
     Route: 048
     Dates: start: 20070629
  6. LYRICA [Suspect]
     Indication: POLYNEUROPATHY
     Dosage: (200 MG TID ORAL), (DF)
     Route: 048
     Dates: start: 20070629
  7. BEVIPLEX [Concomitant]
  8. GLYBURIDE [Concomitant]
  9. INSULATARD [Concomitant]
  10. SALURES [Concomitant]

REACTIONS (7)
  - DIALYSIS [None]
  - GENERAL PHYSICAL HEALTH DETERIORATION [None]
  - LACTIC ACIDOSIS [None]
  - MULTI-ORGAN FAILURE [None]
  - MYOGLOBIN BLOOD INCREASED [None]
  - NO THERAPEUTIC RESPONSE [None]
  - RENAL FAILURE [None]
